FAERS Safety Report 6156471-6 (Version None)
Quarter: 2009Q2

REPORT INFORMATION
  Report Type: 
  Country: None (occurrence: None)
  Receive Date: 20090416
  Receipt Date: 20090316
  Transmission Date: 20091009
  Serious: No
  Sender: FDA-Public Use
  Company Number: US-BAYER-200910201NA

PATIENT
  Age: 87 Year
  Sex: Male
  Weight: 67 kg

DRUGS (1)
  1. AVELOX [Suspect]
     Indication: SINUSITIS
     Dates: start: 20081223

REACTIONS (4)
  - DYSARTHRIA [None]
  - FATIGUE [None]
  - GLOSSODYNIA [None]
  - HYPERSOMNIA [None]
